FAERS Safety Report 16252324 (Version 2)
Quarter: 2019Q2

REPORT INFORMATION
  Report Type: Spontaneous
  Country: JP (occurrence: JP)
  Receive Date: 20190429
  Receipt Date: 20190604
  Transmission Date: 20190711
  Serious: Yes (Life-Threatening)
  Sender: FDA-Public Use
  Company Number: JP-ELI_LILLY_AND_COMPANY-JP201904014099

PATIENT
  Age: 66 Year
  Sex: Male

DRUGS (6)
  1. ERBITUX [Suspect]
     Active Substance: CETUXIMAB
     Indication: SALIVARY GLAND CANCER
     Dosage: UNK UNK, UNKNOWN
     Route: 042
     Dates: start: 2018, end: 20190219
  2. DEXART [Concomitant]
     Active Substance: DEXAMETHASONE SODIUM PHOSPHATE
     Indication: PREMEDICATION
     Dosage: 9.9 MG, UNK
     Route: 041
     Dates: start: 20190423
  3. PACLITAXEL. [Concomitant]
     Active Substance: PACLITAXEL
     Indication: SALIVARY GLAND CANCER
     Dosage: 80 MG/M2, UNK
     Route: 041
     Dates: start: 20190423
  4. POLARAMINE [Concomitant]
     Active Substance: DEXCHLORPHENIRAMINE MALEATE
     Indication: PREMEDICATION
     Dosage: 5 MG, UNK
     Route: 041
     Dates: start: 20190423
  5. ERBITUX [Suspect]
     Active Substance: CETUXIMAB
     Indication: METASTASES TO LUNG
     Dosage: 400 MG/M2, UNK
     Route: 041
     Dates: start: 20190423, end: 20190423
  6. ALOXI [Concomitant]
     Active Substance: PALONOSETRON HYDROCHLORIDE
     Indication: PREMEDICATION
     Dosage: .75 MG, UNK
     Route: 041
     Dates: start: 20190423

REACTIONS (4)
  - Blood pressure decreased [Recovered/Resolved]
  - Off label use [Unknown]
  - Wheezing [Recovered/Resolved]
  - Nausea [Recovered/Resolved]

NARRATIVE: CASE EVENT DATE: 20190423
